FAERS Safety Report 22249367 (Version 4)
Quarter: 2023Q4

REPORT INFORMATION
  Report Type: Spontaneous
  Country: AR (occurrence: AR)
  Receive Date: 20230425
  Receipt Date: 20231026
  Transmission Date: 20240109
  Serious: No
  Sender: FDA-Public Use
  Company Number: AR-PFIZER INC-202300156073

PATIENT
  Age: 16 Year
  Sex: Male
  Weight: 21.7 kg

DRUGS (1)
  1. GENOTROPIN [Suspect]
     Active Substance: SOMATROPIN
     Dosage: 0.6 MG, DAILY
     Dates: start: 2020

REACTIONS (2)
  - Expired device used [Unknown]
  - Device information output issue [Unknown]

NARRATIVE: CASE EVENT DATE: 20230413
